FAERS Safety Report 19159252 (Version 25)
Quarter: 2024Q1

REPORT INFORMATION
  Report Type: Spontaneous
  Country: AR (occurrence: AR)
  Receive Date: 20210420
  Receipt Date: 20240314
  Transmission Date: 20240409
  Serious: Yes (Other)
  Sender: FDA-Public Use
  Company Number: AR-MYLANLABS-2021M1022943

PATIENT
  Age: 16 Year
  Sex: Female

DRUGS (2)
  1. CLOZAPINE [Suspect]
     Active Substance: CLOZAPINE
     Indication: Developmental delay
     Dosage: 300 MILLIGRAM, QD
     Route: 065
     Dates: start: 20161201
  2. NORETHINDRONE [Concomitant]
     Active Substance: NORETHINDRONE
     Indication: Contraception
     Dosage: UNK
     Route: 065

REACTIONS (4)
  - Neutropenia [Recovered/Resolved]
  - Neutrophil count increased [Recovering/Resolving]
  - Leukocytosis [Recovering/Resolving]
  - Off label use [Unknown]

NARRATIVE: CASE EVENT DATE: 20161201
